FAERS Safety Report 8489109-3 (Version None)
Quarter: 2012Q3

REPORT INFORMATION
  Report Type: 
  Country: None (occurrence: None)
  Receive Date: 20120705
  Receipt Date: 20120628
  Transmission Date: 20120928
  Serious: No
  Sender: FDA-Public Use
  Company Number: US-B.I. PHARMACEUTICALS,INC./RIDGEFIELD-2012-BP-14828PF

PATIENT
  Sex: Male

DRUGS (4)
  1. XANAX [Suspect]
  2. SPIRIVA [Suspect]
  3. LYRICA [Suspect]
  4. PROTONIX [Suspect]

REACTIONS (1)
  - THROMBOSIS [None]
